FAERS Safety Report 5068747-4 (Version None)
Quarter: 2006Q3

REPORT INFORMATION
  Report Type: 
  Country: None (occurrence: None)
  Receive Date: 20060802
  Receipt Date: 20060314
  Transmission Date: 20061208
  Serious: No
  Sender: FDA-Public Use
  Company Number: US-BRISTOL-MYERS SQUIBB COMPANY-13314661

PATIENT
  Sex: Male

DRUGS (4)
  1. COUMADIN [Suspect]
     Dates: start: 20060313
  2. ZOCOR [Concomitant]
  3. TOPROL-XL [Concomitant]
  4. MULTI-VITAMIN [Concomitant]

REACTIONS (1)
  - PERIPHERAL COLDNESS [None]
